FAERS Safety Report 8075961-2 (Version None)
Quarter: 2012Q1

REPORT INFORMATION
  Report Type: 
  Country: None (occurrence: None)
  Receive Date: 20120127
  Receipt Date: 20101210
  Transmission Date: 20120608
  Serious: No
  Sender: FDA-Public Use
  Company Number: US-GLAXOSMITHKLINE-A0899331A

PATIENT
  Age: 48 Year
  Sex: Male

DRUGS (9)
  1. PROZAC [Concomitant]
  2. BUPROPION HYDROCHLORIDE [Suspect]
     Indication: MENTAL DISORDER
     Dosage: 100MG THREE TIMES PER DAY
     Route: 048
     Dates: start: 20100101
  3. NAPROXEN (ALEVE) [Concomitant]
  4. ATRIPLA [Concomitant]
  5. COMBIVIR [Concomitant]
  6. SUSTIVA [Concomitant]
  7. MULTI-VITAMIN [Concomitant]
  8. LIBRIUM [Concomitant]
     Indication: ALCOHOL ABUSE
  9. PROTONIX [Concomitant]

REACTIONS (1)
  - DRUG SCREEN POSITIVE [None]
